FAERS Safety Report 6687015-8 (Version None)
Quarter: 2010Q2

REPORT INFORMATION
  Report Type: 
  Country: None (occurrence: None)
  Receive Date: 20100419
  Receipt Date: 20100415
  Transmission Date: 20101027
  Serious: Yes (Hospitalization, Other)
  Sender: FDA-Public Use
  Company Number: IN-ROXANE LABORATORIES, INC.-2010-RO-00429RO

PATIENT
  Age: 78 Year
  Sex: Male

DRUGS (13)
  1. MORPHINE [Suspect]
     Indication: NERVE BLOCK
     Route: 008
  2. LIDOCAINE [Suspect]
     Indication: EPIDURAL TEST DOSE
     Route: 008
  3. BUPIVACAINE HCL [Suspect]
     Indication: NERVE BLOCK
     Route: 008
  4. BUPIVACAINE HCL [Suspect]
     Route: 008
  5. FENTANYL [Suspect]
     Indication: NERVE BLOCK
     Route: 008
  6. EPINEPHRINE [Suspect]
     Indication: EPIDURAL TEST DOSE
     Route: 008
  7. RINGER'S [Concomitant]
     Indication: RESUSCITATION
     Route: 042
  8. HETASTARCH IN SODIUM CHLORIDE [Concomitant]
     Indication: RESUSCITATION
     Route: 042
  9. MEPHENTERMINE [Concomitant]
     Indication: RESUSCITATION
     Route: 042
  10. ATROPINE [Concomitant]
     Indication: RESUSCITATION
     Route: 042
  11. NALOXONE [Concomitant]
     Indication: RESPIRATORY RATE DECREASED
  12. NALOXONE [Concomitant]
     Indication: OXYGEN SATURATION DECREASED
  13. NALOXONE [Concomitant]
     Indication: SOMNOLENCE

REACTIONS (6)
  - ANAESTHETIC COMPLICATION [None]
  - BRADYCARDIA [None]
  - OXYGEN SATURATION DECREASED [None]
  - PROCEDURAL HYPOTENSION [None]
  - RESPIRATORY RATE DECREASED [None]
  - SOMNOLENCE [None]
